FAERS Safety Report 12240990 (Version 1)
Quarter: 2016Q2

REPORT INFORMATION
  Report Type: Spontaneous
  Country: GB (occurrence: GB)
  Receive Date: 20160406
  Receipt Date: 20160406
  Transmission Date: 20160815
  Serious: Yes (Hospitalization)
  Sender: FDA-Public Use
  Company Number: GB-ACCORD-039407

PATIENT
  Sex: Female

DRUGS (8)
  1. ONDANSETRON/ONDANSETRON HYDROCHLORIDE [Concomitant]
  2. METOCLOPRAMIDE. [Concomitant]
     Active Substance: METOCLOPRAMIDE
  3. ETOPOSIDE. [Suspect]
     Active Substance: ETOPOSIDE
     Indication: PRODUCT USED FOR UNKNOWN INDICATION
     Route: 042
  4. LEVOFLOXACIN/LEVOFLOXACIN MESYLATE [Concomitant]
  5. NICORETTE [Concomitant]
     Active Substance: NICOTINE
  6. CISPLATIN. [Suspect]
     Active Substance: CISPLATIN
     Indication: PRODUCT USED FOR UNKNOWN INDICATION
  7. PEGFILGRASTIM [Suspect]
     Active Substance: PEGFILGRASTIM
     Indication: PROPHYLAXIS
     Route: 058
     Dates: start: 20160313
  8. APREPITANT. [Concomitant]
     Active Substance: APREPITANT

REACTIONS (1)
  - Supraventricular tachycardia [Not Recovered/Not Resolved]

NARRATIVE: CASE EVENT DATE: 20160313
